FAERS Safety Report 9538823 (Version 4)
Quarter: 2013Q4

REPORT INFORMATION
  Report Type: Report from Study
  Country: US (occurrence: US)
  Receive Date: 20130920
  Receipt Date: 20131127
  Transmission Date: 20140711
  Serious: Yes (Death)
  Sender: FDA-Public Use
  Company Number: PHEH2013US019622

PATIENT
  Age: 74 Year
  Sex: Male

DRUGS (1)
  1. TOBI PODHALER [Suspect]
     Indication: PNEUMONIA PSEUDOMONAL
     Dosage: 28 MG, QID

REACTIONS (1)
  - Death [Fatal]
